FAERS Safety Report 10579902 (Version 4)
Quarter: 2015Q1

REPORT INFORMATION
  Report Type: Spontaneous
  Country: AU (occurrence: AU)
  Receive Date: 20141112
  Receipt Date: 20150112
  Transmission Date: 20150720
  Serious: Yes (Hospitalization, Other)
  Sender: FDA-Public Use
  Company Number: AU-PFIZER INC-2014308572

PATIENT
  Age: 52 Year
  Sex: Male

DRUGS (16)
  1. LYRICA [Suspect]
     Active Substance: PREGABALIN
     Dosage: 225 MG, 2X/DAY
     Route: 048
     Dates: start: 201409, end: 20141107
  2. RITONAVIR. [Concomitant]
     Active Substance: RITONAVIR
     Dosage: 100 MG, 2X/DAY
  3. MS CONTIN [Concomitant]
     Active Substance: MORPHINE SULFATE
     Dosage: 40 MG, 2X/DAY
  4. ANGININE [Concomitant]
     Dosage: UNK, AS NEEDED
  5. OMEPRAZOLE. [Concomitant]
     Active Substance: OMEPRAZOLE
     Dosage: 20 MG, UNK
  6. VALIUM [Concomitant]
     Active Substance: DIAZEPAM
     Dosage: 5 MG, 2X/DAY AS NEEDED
  7. VENTOLIN [Concomitant]
     Active Substance: ALBUTEROL SULFATE
     Dosage: UNK
  8. IMOVANE [Concomitant]
     Active Substance: ZOPICLONE
     Dosage: 7.5 MG, 1X/DAY AT NIGHT
  9. TERBINAFINE [Concomitant]
     Active Substance: TERBINAFINE
     Dosage: 250 MG, DAILY
  10. NAPROSYN [Concomitant]
     Active Substance: NAPROXEN
     Dosage: 1000 UNK, UNK
  11. ATORVASTATIN [Concomitant]
     Active Substance: ATORVASTATIN
     Dosage: 20 MG, UNK
  12. PROCHLORPERAZINE. [Concomitant]
     Active Substance: PROCHLORPERAZINE
     Dosage: 1 DF, 2X/DAY AS NEEDED
  13. LYRICA [Suspect]
     Active Substance: PREGABALIN
     Indication: NEURALGIA
     Dosage: 75 MG, UNK
     Route: 048
     Dates: start: 20131227
  14. ENDONE [Concomitant]
     Active Substance: OXYCODONE HYDROCHLORIDE
     Dosage: 5MG, 1-2 PRN/DAY
  15. BACTRIM DS [Concomitant]
     Active Substance: SULFAMETHOXAZOLE\TRIMETHOPRIM
     Dosage: UNK
  16. DARUNAVIR [Concomitant]
     Active Substance: DARUNAVIR
     Dosage: 600 MG, 2X/DAY

REACTIONS (9)
  - Seizure [Recovered/Resolved]
  - Loss of consciousness [Unknown]
  - Pyrexia [Recovered/Resolved]
  - Tongue disorder [Unknown]
  - Speech disorder [Unknown]
  - Muscle spasms [Unknown]
  - Cognitive disorder [Recovered/Resolved]
  - Dysarthria [Unknown]
  - Medication error [Recovered/Resolved]

NARRATIVE: CASE EVENT DATE: 2014
